FAERS Safety Report 14490317 (Version 1)
Quarter: 2018Q1

REPORT INFORMATION
  Report Type: Report from Study
  Country: None (occurrence: BR)
  Receive Date: 20180206
  Receipt Date: 20180206
  Transmission Date: 20180509
  Serious: Yes (Death)
  Sender: FDA-Public Use
  Company Number: BR-ABBVIE-18K-020-2246067-00

PATIENT
  Sex: Female

DRUGS (1)
  1. HUMIRA [Suspect]
     Active Substance: ADALIMUMAB
     Indication: PSORIATIC ARTHROPATHY
     Route: 058
     Dates: start: 20170327

REACTIONS (5)
  - Organ failure [Fatal]
  - Oral candidiasis [Unknown]
  - Renal disorder [Unknown]
  - Cardiac disorder [Unknown]
  - Pneumonia [Unknown]
